FAERS Safety Report 9952184 (Version 1)
Quarter: 2014Q1

REPORT INFORMATION
  Report Type: Report from Study
  Country: US (occurrence: US)
  Receive Date: 20140304
  Receipt Date: 20140304
  Transmission Date: 20141002
  Serious: No
  Sender: FDA-Public Use
  Company Number: US-ABBVIE-13P-163-1080148-00

PATIENT
  Age: 75 Year
  Sex: Female

DRUGS (4)
  1. HUMIRA [Suspect]
     Indication: PSORIASIS
     Dates: start: 20130404
  2. HUMIRA [Suspect]
     Dates: start: 20130411
  3. OVER THE COUNTER PHILLIPS PROBIOTIC [Concomitant]
     Indication: VITAMIN SUPPLEMENTATION
  4. FULL STRENGTH ASPIRIN [Concomitant]
     Indication: ARTHRITIS
     Dosage: OCCASIONALLY

REACTIONS (1)
  - Arthropod bite [Not Recovered/Not Resolved]
